FAERS Safety Report 22525508 (Version 1)
Quarter: 2023Q2

REPORT INFORMATION
  Report Type: Other
  Country: None (occurrence: CN)
  Receive Date: 20230606
  Receipt Date: 20230606
  Transmission Date: 20230721
  Serious: Yes (Other)
  Sender: FDA-Public Use
  Company Number: CN-Guardian Drug Company-2142366

PATIENT
  Age: 35 Year
  Sex: Female

DRUGS (3)
  1. CHILDRENS IBUPROFEN [Suspect]
     Active Substance: IBUPROFEN
     Indication: Pyrexia
     Route: 048
  2. METRONIDAZOLE [Interacting]
     Active Substance: METRONIDAZOLE
     Route: 065
  3. CEFUROXIME AXETIL [Concomitant]
     Active Substance: CEFUROXIME AXETIL
     Route: 065

REACTIONS (2)
  - Liver injury [Recovering/Resolving]
  - Drug interaction [Unknown]
